FAERS Safety Report 18101002 (Version 3)
Quarter: 2020Q4

REPORT INFORMATION
  Report Type: Spontaneous
  Country: US (occurrence: US)
  Receive Date: 20200731
  Receipt Date: 20201203
  Transmission Date: 20210113
  Serious: Yes (Hospitalization, Congenital Anomaly, Other)
  Sender: FDA-Public Use
  Company Number: US-PURDUE-USA-2020-0159248

PATIENT
  Sex: Female

DRUGS (9)
  1. MORPHINE SULFATE EXTENDED-RELEASE TABLETS (RHODES 74-769, 74-862) [Suspect]
     Active Substance: MORPHINE SULFATE
     Indication: PRODUCT USED FOR UNKNOWN INDICATION
     Dosage: UNKNOWN DOSAGE
     Route: 048
  2. TORADOL [Suspect]
     Active Substance: KETOROLAC TROMETHAMINE
     Indication: PRODUCT USED FOR UNKNOWN INDICATION
     Dosage: UNKNOWN DOSAGE
     Route: 065
  3. OXYCODONE HCL CR TABLETS (SIMILAR TO NDA 22-272) [Suspect]
     Active Substance: OXYCODONE HYDROCHLORIDE
     Indication: PAIN
     Route: 048
  4. OXYCODONE HCL TABLETS (RHODES 91-490) [Suspect]
     Active Substance: OXYCODONE HYDROCHLORIDE
     Indication: PAIN
     Route: 048
  5. FENTANYL. [Suspect]
     Active Substance: FENTANYL
     Indication: PRODUCT USED FOR UNKNOWN INDICATION
     Dosage: UNKNOWN DOSAGE
     Route: 065
  6. OXYCODONE/ ACETAMINOPHEN TABLETS [Suspect]
     Active Substance: ACETAMINOPHEN\OXYCODONE HYDROCHLORIDE
     Indication: PAIN
     Route: 048
  7. OXYCONTIN [Suspect]
     Active Substance: OXYCODONE HYDROCHLORIDE
     Indication: PAIN
     Dosage: UNKNOWN DOSAGE
     Route: 048
  8. DILAUDID [Suspect]
     Active Substance: HYDROMORPHONE HYDROCHLORIDE
     Indication: PAIN
     Route: 048
  9. TRAMADOL. [Suspect]
     Active Substance: TRAMADOL
     Indication: PRODUCT USED FOR UNKNOWN INDICATION
     Dosage: UNKNOWN DOSAGE
     Route: 065

REACTIONS (61)
  - Brain injury [Not Recovered/Not Resolved]
  - Hypotension [Unknown]
  - Back pain [Unknown]
  - Hypopnoea [Unknown]
  - Skin disorder [Unknown]
  - Vision blurred [Unknown]
  - Sensory loss [Unknown]
  - Psychiatric symptom [Unknown]
  - Injury [Unknown]
  - Exposure during pregnancy [Unknown]
  - Asthenia [Unknown]
  - Learning disability [Unknown]
  - Vomiting [Unknown]
  - Decreased appetite [Unknown]
  - Hyperhidrosis [Unknown]
  - Dizziness [Unknown]
  - Gastrointestinal disorder [Unknown]
  - Pharyngeal swelling [Unknown]
  - General physical health deterioration [Unknown]
  - Ocular discomfort [Unknown]
  - Accommodation disorder [Unknown]
  - Pain [Unknown]
  - Mental disorder [Unknown]
  - Depression [Unknown]
  - Chills [Unknown]
  - Abdominal discomfort [Unknown]
  - Muscle atrophy [Unknown]
  - Muscular weakness [Unknown]
  - Self esteem decreased [Unknown]
  - Refraction disorder [Unknown]
  - Oculomotor study abnormal [Unknown]
  - Myopia [Unknown]
  - Visual field defect [Unknown]
  - Toxicity to various agents [Unknown]
  - Nausea [Unknown]
  - Dyspnoea [Unknown]
  - Visual impairment [Unknown]
  - Fatigue [Unknown]
  - Impaired healing [Unknown]
  - Unevaluable event [Unknown]
  - Astigmatism [Unknown]
  - Binocular eye movement disorder [Unknown]
  - Abortion spontaneous [Unknown]
  - Confusional state [Unknown]
  - Obstructive defaecation [Unknown]
  - Urticaria [Unknown]
  - Somnolence [Unknown]
  - Dysarthria [Unknown]
  - Saccadic eye movement [Unknown]
  - Presbyopia [Unknown]
  - Rash [Unknown]
  - Irritability [Unknown]
  - Emotional distress [Unknown]
  - Developmental delay [Unknown]
  - Congenital anomaly [Unknown]
  - Bladder pain [Unknown]
  - Cerebrovascular accident [Unknown]
  - Syncope [Unknown]
  - Myalgia [Unknown]
  - Amnesia [Unknown]
  - Pelvic discomfort [Unknown]
